FAERS Safety Report 21686566 (Version 1)
Quarter: 2022Q4

REPORT INFORMATION
  Report Type: Spontaneous
  Country: NL (occurrence: NL)
  Receive Date: 20221206
  Receipt Date: 20221206
  Transmission Date: 20230112
  Serious: Yes (Other)
  Sender: FDA-Public Use
  Company Number: NL-LRB-00845653

PATIENT
  Sex: Male
  Weight: 109.5 kg

DRUGS (6)
  1. OLANZAPINE [Suspect]
     Active Substance: OLANZAPINE
     Indication: Psychotic disorder
     Dosage: 10 MILLIGRAM, DAILY; 1 X PER DAY 1 PIECE
     Route: 065
     Dates: start: 20170801
  2. HYDROCHLOROTHIAZIDE [Concomitant]
     Active Substance: HYDROCHLOROTHIAZIDE
     Indication: Product used for unknown indication
     Dosage: 12.5 MICROGRAM, DAILY, TABLET
     Route: 065
  3. NORTRIPTYLINE TABLET 50MG / NORTRILEN TABLET 50MG [Concomitant]
     Indication: Product used for unknown indication
     Dosage: 100 MILLIGRAM, DAILY; TABLET
     Route: 065
  4. AMLODIPINE [Concomitant]
     Active Substance: AMLODIPINE BESYLATE
     Indication: Product used for unknown indication
     Dosage: 5 MILLIGRAM, DAILY, TABLET
     Route: 065
  5. ENALAPRIL TABLET 5MG [Concomitant]
     Indication: Product used for unknown indication
     Dosage: 5 MILLIGRAM, DAILY, TABLET
     Route: 065
  6. MACROGOL/ZOUTEN PDR V DRANK (MOVIC/MOLAX/LAXT/GEN) [Concomitant]
     Indication: Product used for unknown indication
     Dosage: 1 GTT DROPS, POWDER FOR ORAL SOLUTION, SPORADICALLY
     Route: 065

REACTIONS (5)
  - Apnoea [Unknown]
  - Periorbital oedema [Unknown]
  - Oedema peripheral [Unknown]
  - Localised oedema [Unknown]
  - Snoring [Unknown]
